FAERS Safety Report 5829090-6 (Version None)
Quarter: 2008Q3

REPORT INFORMATION
  Report Type: 
  Country: None (occurrence: None)
  Receive Date: 20080731
  Receipt Date: 20080723
  Transmission Date: 20090109
  Serious: Yes (Disabling)
  Sender: FDA-Public Use
  Company Number: US-TYCO HEALTHCARE/MALLINCKRODT-T200800548

PATIENT

DRUGS (18)
  1. OPTIMARK [Suspect]
     Indication: NUCLEAR MAGNETIC RESONANCE IMAGING
     Route: 042
     Dates: start: 20060727, end: 20060727
  2. OPTIMARK [Suspect]
     Route: 042
     Dates: start: 20060731, end: 20060731
  3. MAGNEVIST [Suspect]
     Indication: NUCLEAR MAGNETIC RESONANCE IMAGING
     Dates: start: 20050527, end: 20050527
  4. HUMULIN N [Concomitant]
     Indication: DIABETES MELLITUS
     Dosage: 15 IU, QID (INSULIN N AND R)
     Dates: start: 19900101
  5. ENBREL [Concomitant]
     Indication: ARTHRITIS
     Dosage: 500 MG, SHOT ONE TIME WEEKLY
     Dates: start: 20051001
  6. BENICAR [Concomitant]
     Indication: BLOOD PRESSURE
     Dosage: 40 MG, QD
  7. SIMVASTATIN [Concomitant]
     Indication: BLOOD CHOLESTEROL
     Dosage: 80 MG, QD
  8. FOLIC ACID [Concomitant]
     Indication: ANAEMIA
     Dosage: 1 MG, BID
  9. BUMETANIDE [Concomitant]
     Indication: DIURETIC THERAPY
     Dosage: 2 MG, UNK
  10. HYDROCODONE BITARTRATE [Concomitant]
     Indication: PAIN
     Dosage: 7.5/500
     Dates: start: 20060101
  11. ALLOPURINOL [Concomitant]
     Indication: GOUT
  12. CLONIDINE [Concomitant]
     Indication: HYPERTENSION
     Dosage: .3 MG, ONE PATCH WEEKLY
  13. NORVASC [Concomitant]
     Indication: HYPERTENSION
     Dosage: 5 MG, QD
  14. LEVOTHYROXINE SODIUM [Concomitant]
     Indication: THYROID DISORDER
     Dosage: 25 UG, QD
  15. TRAVATAN [Concomitant]
     Indication: GLAUCOMA
     Dosage: .004 %, ONE DROP IN EACH EYE DAILY
  16. ARANESP [Concomitant]
     Indication: ANAEMIA
     Dosage: 100 MG, ONE SHOT MONTHLY
  17. ZYRTEC [Concomitant]
     Indication: HYPERSENSITIVITY
     Dosage: 10 MG, PRN
  18. TEMAZEPAM [Concomitant]
     Indication: SLEEP DISORDER
     Dosage: (2) 15 MG AT BEDTIME

REACTIONS (1)
  - NEPHROGENIC SYSTEMIC FIBROSIS [None]
